FAERS Safety Report 11569110 (Version 1)
Quarter: 2015Q3

REPORT INFORMATION
  Report Type: Spontaneous
  Country: PL (occurrence: PL)
  Receive Date: 20150929
  Receipt Date: 20150929
  Transmission Date: 20151125
  Serious: Yes (Other)
  Sender: FDA-Public Use
  Company Number: PL-BIOGENIDEC-2015BI130680

PATIENT
  Age: 31 Year
  Sex: Female

DRUGS (4)
  1. AVONEX [Suspect]
     Active Substance: INTERFERON BETA-1A
     Indication: MULTIPLE SCLEROSIS
     Route: 030
     Dates: start: 20141204, end: 20150908
  2. PAROGEN [Concomitant]
  3. HYDROXYZYNA [Concomitant]
     Active Substance: FLUOXETINE HYDROCHLORIDE
  4. CLONAZEPAM. [Concomitant]
     Active Substance: CLONAZEPAM

REACTIONS (1)
  - Mental disorder [Unknown]

NARRATIVE: CASE EVENT DATE: 20150723
